FAERS Safety Report 10064870 (Version 2)
Quarter: 2014Q2

REPORT INFORMATION
  Report Type: Spontaneous
  Country: US (occurrence: US)
  Receive Date: 20140408
  Receipt Date: 20140417
  Transmission Date: 20141212
  Serious: Yes (Hospitalization)
  Sender: FDA-Public Use
  Company Number: US-OTSUKA-US-2014-10541

PATIENT
  Sex: Male

DRUGS (3)
  1. ABILIFY MAINTENA [Suspect]
     Indication: SCHIZOPHRENIA
     Dosage: 400 MG MILLIGRAM(S), Q4 WEEKS
     Route: 030
     Dates: start: 20140107
  2. ABILIFY MAINTENA [Suspect]
     Dosage: 400 MG MILLIGRAM(S), Q4 WEEKS
     Route: 030
     Dates: start: 20140214
  3. ABILIFY MAINTENA [Suspect]
     Dosage: 400 MG MILLIGRAM(S), Q4 WEEKS
     Route: 030
     Dates: start: 20140304

REACTIONS (3)
  - Diabetes mellitus [Unknown]
  - Diabetic ketoacidosis [Recovered/Resolved]
  - Weight decreased [Unknown]
